FAERS Safety Report 15171322 (Version 1)
Quarter: 2018Q3

REPORT INFORMATION
  Report Type: Spontaneous
  Country: US (occurrence: US)
  Receive Date: 20180622
  Receipt Date: 20180622
  Transmission Date: 20181010
  Serious: Yes (Hospitalization)
  Sender: FDA-Public Use
  Company Number: None

PATIENT
  Age: 53 Year
  Sex: Male

DRUGS (2)
  1. CLOBETASOL CREAM [Concomitant]
     Active Substance: CLOBETASOL
  2. STELARA [Suspect]
     Active Substance: USTEKINUMAB
     Indication: PSORIASIS
     Dosage: 90 MG EVERY 12 WEEKS?
     Route: 058
     Dates: start: 20170712

REACTIONS (1)
  - Cellulitis staphylococcal [None]

NARRATIVE: CASE EVENT DATE: 20180609
